FAERS Safety Report 4384058-4 (Version None)
Quarter: 2004Q2

REPORT INFORMATION
  Report Type: 
  Country: None (occurrence: None)
  Receive Date: 20040621
  Receipt Date: 20040615
  Transmission Date: 20050107
  Serious: Yes (Life-Threatening, Other)
  Sender: FDA-Public Use
  Company Number: BG-2004-027064

PATIENT
  Age: 49 Year
  Sex: Male

DRUGS (7)
  1. ULTRAVIST 370 [Suspect]
     Indication: ARTERIOGRAM CORONARY
     Dosage: 100 ML, 1 DOSE
     Dates: start: 20040615, end: 20040615
  2. DIGOXIN [Concomitant]
  3. CARVEDILOL [Concomitant]
  4. SINTROM [Concomitant]
  5. METIZOL (THIAMAZOLE) [Concomitant]
  6. DEPAKENE [Concomitant]
  7. PRESTARIUM (PERINDOPRIL) [Concomitant]

REACTIONS (3)
  - ANAPHYLACTOID SHOCK [None]
  - DISORIENTATION [None]
  - TACHYPNOEA [None]
